FAERS Safety Report 12987197 (Version 1)
Quarter: 2016Q4

REPORT INFORMATION
  Report Type: Spontaneous
  Country: EG (occurrence: EG)
  Receive Date: 20161130
  Receipt Date: 20161130
  Transmission Date: 20170207
  Serious: Yes (Other)
  Sender: FDA-Public Use
  Company Number: PHHY2016EG159983

PATIENT
  Age: 3 Year
  Sex: Female

DRUGS (2)
  1. CEFTRIAXONE+LIDOCAINE SANDOZ [Suspect]
     Active Substance: CEFTRIAXONE
     Indication: GASTROENTERITIS
     Dosage: 0.5 G, QD
     Route: 030
  2. CEFTRIAXONE+LIDOCAINE SANDOZ [Suspect]
     Active Substance: CEFTRIAXONE
     Indication: BRONCHITIS

REACTIONS (2)
  - Cholelithiasis [Unknown]
  - Cholestasis [Unknown]
